FAERS Safety Report 8273514-4 (Version None)
Quarter: 2012Q2

REPORT INFORMATION
  Report Type: 
  Country: None (occurrence: None)
  Receive Date: 20120409
  Receipt Date: 20120409
  Transmission Date: 20120825
  Serious: Yes (Other)
  Sender: FDA-Public Use
  Company Number: None

PATIENT
  Age: 30 Year
  Sex: Male
  Weight: 122.4712 kg

DRUGS (1)
  1. NORCO [Suspect]
     Indication: FIBROMYALGIA
     Dosage: 10MG/325 PO 4 A DAY
     Route: 048
     Dates: start: 20020325

REACTIONS (3)
  - MALAISE [None]
  - NAUSEA [None]
  - MIGRAINE [None]
